FAERS Safety Report 6550341-7 (Version None)
Quarter: 2010Q1

REPORT INFORMATION
  Report Type: 
  Country: None (occurrence: None)
  Receive Date: 20100125
  Receipt Date: 20100114
  Transmission Date: 20100710
  Serious: No
  Sender: FDA-Public Use
  Company Number: US-JNJFOC-20100106738

PATIENT
  Age: 63 Year
  Sex: Female

DRUGS (24)
  1. RISPERIDONE [Suspect]
     Indication: PSYCHOTIC DISORDER
     Route: 065
  2. RISPERIDONE [Suspect]
     Indication: DEPRESSION
     Route: 065
  3. RISPERIDONE [Suspect]
     Indication: MANIA
     Route: 065
  4. RISPERIDONE [Suspect]
     Route: 065
  5. RISPERIDONE [Suspect]
     Route: 065
  6. RISPERIDONE [Suspect]
     Route: 065
  7. PALIPERIDONE [Suspect]
     Indication: PSYCHOTIC DISORDER
     Route: 065
  8. PALIPERIDONE [Suspect]
     Indication: DEPRESSION
     Route: 065
  9. PALIPERIDONE [Suspect]
     Indication: MANIA
     Route: 065
  10. HALOPERIDOL [Suspect]
     Indication: PSYCHOTIC DISORDER
  11. HALOPERIDOL [Suspect]
     Indication: DEPRESSION
  12. HALOPERIDOL [Suspect]
     Indication: MANIA
  13. ZIPRASIDONE HCL [Suspect]
     Indication: PSYCHOTIC DISORDER
  14. ZIPRASIDONE HCL [Suspect]
     Indication: DEPRESSION
  15. ZIPRASIDONE HCL [Suspect]
     Indication: MANIA
  16. QUETIAPINE [Suspect]
     Indication: PSYCHOTIC DISORDER
  17. QUETIAPINE [Suspect]
     Indication: DEPRESSION
  18. QUETIAPINE [Suspect]
     Indication: MANIA
  19. LAMOTRIGINE [Suspect]
     Indication: PSYCHOTIC DISORDER
  20. LAMOTRIGINE [Suspect]
     Indication: DEPRESSION
  21. LAMOTRIGINE [Suspect]
     Indication: MANIA
  22. VALPROIC ACID [Suspect]
     Indication: PSYCHOTIC DISORDER
  23. VALPROIC ACID [Suspect]
     Indication: DEPRESSION
  24. VALPROIC ACID [Suspect]
     Indication: MANIA

REACTIONS (2)
  - ADVERSE EVENT [None]
  - DRUG INEFFECTIVE [None]
